FAERS Safety Report 16588932 (Version 3)
Quarter: 2019Q3

REPORT INFORMATION
  Report Type: Spontaneous
  Country: TW (occurrence: TW)
  Receive Date: 20190718
  Receipt Date: 20190812
  Transmission Date: 20191004
  Serious: Yes (Hospitalization, Other)
  Sender: FDA-Public Use
  Company Number: TW-ACTELION-A-CH2019-192883

PATIENT
  Age: 44 Year
  Sex: Female

DRUGS (14)
  1. REVATIO [Concomitant]
     Active Substance: SILDENAFIL CITRATE
     Dosage: UNK
     Dates: start: 20151217
  2. DIGOXIN. [Concomitant]
     Active Substance: DIGOXIN
     Dosage: 0.125 MG, QD
     Route: 048
  3. UPTRAVI [Suspect]
     Active Substance: SELEXIPAG
     Dosage: 200 MCG, BID
     Route: 048
     Dates: start: 20190704, end: 20190704
  4. UREA. [Concomitant]
     Active Substance: UREA
     Dosage: UNK, BID
     Route: 061
  5. XANAX [Concomitant]
     Active Substance: ALPRAZOLAM
     Dosage: 0.5 MG, PRN
     Route: 048
  6. REMODULIN [Concomitant]
     Active Substance: TREPROSTINIL
     Dosage: 155 NG/KG, PER MIN
     Dates: start: 20180704
  7. UPTRAVI [Suspect]
     Active Substance: SELEXIPAG
     Indication: PULMONARY ARTERIAL HYPERTENSION
     Dosage: 800 MCG AM + 600 MCG PM, QD
     Route: 048
  8. SPIRONOLACTONE. [Concomitant]
     Active Substance: SPIRONOLACTONE
     Dosage: 1 DF, QD
  9. OPSUMIT [Suspect]
     Active Substance: MACITENTAN
     Indication: PULMONARY ARTERIAL HYPERTENSION
     Dosage: UNK
     Route: 048
     Dates: start: 20160616
  10. FUROSEMIDE. [Concomitant]
     Active Substance: FUROSEMIDE
     Dosage: 80 MG, BID
     Route: 048
  11. RADI K [Concomitant]
     Dosage: 1785 MG, BID
     Route: 048
  12. CODEINE [Concomitant]
     Active Substance: CODEINE
     Dosage: 30 MG, QD
     Route: 048
  13. BEENRONE [Concomitant]
     Dosage: 50 MG, QD
  14. PRIMPERAN [Concomitant]
     Active Substance: METOCLOPRAMIDE HYDROCHLORIDE
     Dosage: 5 MG, QD
     Route: 048

REACTIONS (23)
  - Oropharyngeal pain [Unknown]
  - Right ventricular hypertrophy [Unknown]
  - Therapy change [Unknown]
  - Ascites [Unknown]
  - Abdominal distension [Unknown]
  - Catheterisation cardiac [Unknown]
  - Balloon atrial septostomy [Unknown]
  - Tachycardia [Unknown]
  - Alopecia [Unknown]
  - Cough [Unknown]
  - Productive cough [Unknown]
  - Chest pain [Unknown]
  - Cardiac failure [Recovered/Resolved]
  - Right ventricular failure [Unknown]
  - Orthopnoea [Unknown]
  - Pulmonary arterial hypertension [Unknown]
  - Abdominal discomfort [Unknown]
  - Dyspnoea [Unknown]
  - Weight decreased [Unknown]
  - Condition aggravated [Unknown]
  - Right atrial dilatation [Unknown]
  - Decreased appetite [Unknown]
  - Dyspnoea exertional [Unknown]

NARRATIVE: CASE EVENT DATE: 201906
